FAERS Safety Report 21928552 (Version 1)
Quarter: 2023Q1

REPORT INFORMATION
  Report Type: Spontaneous
  Country: US (occurrence: US)
  Receive Date: 20230130
  Receipt Date: 20230130
  Transmission Date: 20230418
  Serious: No
  Sender: FDA-Public Use
  Company Number: US-drreddys-SPO/USA/23/0159767

PATIENT
  Age: 74 Year
  Sex: Male

DRUGS (15)
  1. LENALIDOMIDE [Suspect]
     Active Substance: LENALIDOMIDE
     Indication: Bone disorder
     Dosage: ON DAYS 1-21 EVERY 28 DAYS
     Route: 048
  2. FINASTERIDE [Concomitant]
     Active Substance: FINASTERIDE
     Indication: Product used for unknown indication
  3. FLUOXETINE [Concomitant]
     Active Substance: FLUOXETINE HYDROCHLORIDE
     Indication: Product used for unknown indication
  4. BISACODYL EC TBE 5MG [Concomitant]
     Indication: Product used for unknown indication
  5. ERGOCALCIFER CAP 1.25 MG [Concomitant]
     Indication: Product used for unknown indication
  6. FAMOTIDINE TAB 40MG [Concomitant]
     Indication: Product used for unknown indication
  7. GABAPENTIN TAB 800MG [Concomitant]
     Indication: Product used for unknown indication
  8. INSULIN GLAR SOP 100UNIT [Concomitant]
     Indication: Product used for unknown indication
     Dosage: 100UNIT
  9. INSULIN LISP SOP 100UNIT [Concomitant]
     Indication: Product used for unknown indication
     Dosage: 100UNIT/
  10. LIDOCAINE PTC [Concomitant]
     Indication: Product used for unknown indication
  11. LISINOPRIL TAB 40MG [Concomitant]
     Indication: Product used for unknown indication
  12. METHOCARBAMO TAB 750MG [Concomitant]
     Indication: Product used for unknown indication
  13. FLOMAX [Concomitant]
     Active Substance: TAMSULOSIN HYDROCHLORIDE
     Indication: Product used for unknown indication
  14. MIRALAX POW 17GM/SCOOP [Concomitant]
     Indication: Product used for unknown indication
     Dosage: 17GM/SCOOP
  15. SENNA-S TAB 8.6-50MG [Concomitant]
     Indication: Product used for unknown indication
     Dosage: 8.6-50MG

REACTIONS (3)
  - Fatigue [Recovering/Resolving]
  - Sinusitis [Not Recovered/Not Resolved]
  - Product use in unapproved indication [Unknown]
